FAERS Safety Report 11735712 (Version 1)
Quarter: 2015Q4

REPORT INFORMATION
  Report Type: Spontaneous
  Country: US (occurrence: None)
  Receive Date: 20151112
  Receipt Date: 20151112
  Transmission Date: 20160304
  Serious: Yes (Disabling)
  Sender: FDA-Public Use
  Company Number: None

PATIENT
  Age: 33 Year
  Sex: Female
  Weight: 86.18 kg

DRUGS (11)
  1. CIPRO [Suspect]
     Active Substance: CIPROFLOXACIN HYDROCHLORIDE
     Indication: EAR INFECTION
     Route: 048
     Dates: start: 19950201, end: 20010601
  2. HEARING AID [Concomitant]
  3. WRIST SPLINTS [Concomitant]
  4. ALBUTERAL [Concomitant]
     Active Substance: ALBUTEROL
  5. CIPRO [Suspect]
     Active Substance: CIPROFLOXACIN HYDROCHLORIDE
     Indication: EYELID MARGIN CRUSTING
     Route: 048
     Dates: start: 19950201, end: 20010601
  6. LEVAQUIN [Suspect]
     Active Substance: LEVOFLOXACIN
  7. ARM BRACES [Concomitant]
  8. ANKLE BRACES [Concomitant]
  9. COZAAR [Concomitant]
     Active Substance: LOSARTAN POTASSIUM
  10. VOLTAREN [Concomitant]
     Active Substance: DICLOFENAC SODIUM
  11. LIDO DERMATOLOGIST PATCHES [Concomitant]

REACTIONS (27)
  - Mental disorder [None]
  - Ossicle disorder [None]
  - VIIth nerve paralysis [None]
  - Ear infection [None]
  - Pain in extremity [None]
  - Pain [None]
  - Cough [None]
  - Loss of employment [None]
  - Tenosynovitis [None]
  - Fibromyalgia [None]
  - Nerve root compression [None]
  - Toxicity to various agents [None]
  - Eyelid margin crusting [None]
  - VIIth nerve injury [None]
  - Post-traumatic stress disorder [None]
  - Dizziness [None]
  - Musculoskeletal disorder [None]
  - Deafness unilateral [None]
  - Depression [None]
  - Tympanic membrane perforation [None]
  - Anxiety [None]
  - No therapeutic response [None]
  - Labyrinthine fistula [None]
  - Accident at work [None]
  - Tendon disorder [None]
  - Carpal tunnel syndrome [None]
  - Fracture [None]

NARRATIVE: CASE EVENT DATE: 20010601
